FAERS Safety Report 11043686 (Version 1)
Quarter: 2015Q2

REPORT INFORMATION
  Report Type: Spontaneous
  Country: US (occurrence: None)
  Receive Date: 20150416
  Receipt Date: 20150416
  Transmission Date: 20150821
  Serious: Yes (Life-Threatening)
  Sender: FDA-Public Use
  Company Number: None

PATIENT
  Age: 28 Year
  Sex: Female
  Weight: 122.47 kg

DRUGS (2)
  1. MULTIVITAMIN [Concomitant]
     Active Substance: VITAMINS
  2. MIRENA [Suspect]
     Active Substance: LEVONORGESTREL
     Dates: start: 20130405, end: 20150415

REACTIONS (4)
  - Pregnancy with contraceptive device [None]
  - Back pain [None]
  - Exposure during pregnancy [None]
  - Alopecia [None]

NARRATIVE: CASE EVENT DATE: 20150410
